FAERS Safety Report 18058346 (Version 1)
Quarter: 2020Q3

REPORT INFORMATION
  Report Type: Spontaneous
  Country: ES (occurrence: ES)
  Receive Date: 20200723
  Receipt Date: 20200723
  Transmission Date: 20201103
  Serious: Yes (Other)
  Sender: FDA-Public Use
  Company Number: ES-BAUSCH-BL-2020-020338

PATIENT
  Age: 68 Year
  Sex: Female

DRUGS (9)
  1. LOPINAVIR/RITONAVIR [Interacting]
     Active Substance: LOPINAVIR\RITONAVIR
     Indication: COVID-19 PNEUMONIA
     Dosage: 400/100 MG
     Route: 065
  2. VORTIOXETINE. [Interacting]
     Active Substance: VORTIOXETINE
     Dosage: RE?INTRODUCED
     Route: 065
  3. VORTIOXETINE. [Interacting]
     Active Substance: VORTIOXETINE
     Indication: DEPRESSIVE SYMPTOM
     Dosage: FIVE MONTHS PRIOR CONSULTATION
     Route: 065
  4. TRAZODONE [Interacting]
     Active Substance: TRAZODONE HYDROCHLORIDE
     Indication: DEPRESSIVE SYMPTOM
     Dosage: FIVE MONTHS PRIOR CONSULTATION
     Route: 065
  5. TRAZODONE [Interacting]
     Active Substance: TRAZODONE HYDROCHLORIDE
     Dosage: RE?INTRODOCED
     Route: 065
  6. VENLAFAXINE [Interacting]
     Active Substance: VENLAFAXINE HYDROCHLORIDE
     Dosage: RE?INTRODUCED WITH DECREASED DOSE
     Route: 065
  7. HYDROXYCHLOROQUINE [Interacting]
     Active Substance: HYDROXYCHLOROQUINE
     Indication: COVID-19 PNEUMONIA
     Route: 065
  8. VENLAFAXINE [Suspect]
     Active Substance: VENLAFAXINE HYDROCHLORIDE
     Indication: DEPRESSION
     Dosage: USED MORE THAN FIVE YEARS
     Route: 065
  9. AZITHROMYCIN ANHYDROUS. [Interacting]
     Active Substance: AZITHROMYCIN ANHYDROUS
     Indication: COVID-19 PNEUMONIA
     Route: 065

REACTIONS (4)
  - Electrocardiogram QT prolonged [Recovered/Resolved]
  - Drug interaction [Unknown]
  - Cardiotoxicity [Recovered/Resolved]
  - Drug withdrawal syndrome [Unknown]
